FAERS Safety Report 12499302 (Version 1)
Quarter: 2016Q2

REPORT INFORMATION
  Report Type: Not Available
  Country: US (occurrence: US)
  Receive Date: 20160627
  Receipt Date: 20160627
  Transmission Date: 20160815
  Serious: Yes (Hospitalization)
  Sender: FDA-Public Use
  Company Number: US-ANIPHARMA-2016-US-004266

PATIENT
  Age: 70 Year
  Sex: Male

DRUGS (4)
  1. HALOPERIDOL. [Suspect]
     Active Substance: HALOPERIDOL
     Dosage: UNKNOWN
     Route: 065
  2. RISPERIDONE (NON-SPECIFIC) [Suspect]
     Active Substance: RISPERIDONE
     Dosage: UNKNOWN
     Route: 065
  3. SERTRALINE [Suspect]
     Active Substance: SERTRALINE HYDROCHLORIDE
     Dosage: UNKNOWN
     Route: 065
  4. QUETIAPINE. [Suspect]
     Active Substance: QUETIAPINE
     Dosage: UNKNOWN
     Route: 065

REACTIONS (6)
  - Blood creatine phosphokinase increased [Recovering/Resolving]
  - Urinary incontinence [Recovered/Resolved]
  - Catatonia [Recovered/Resolved]
  - Muscle rigidity [Recovering/Resolving]
  - Tremor [Recovered/Resolved]
  - Disturbance in attention [Recovered/Resolved]
